FAERS Safety Report 25135524 (Version 1)
Quarter: 2025Q1

REPORT INFORMATION
  Report Type: Report from Study
  Country: DE (occurrence: DE)
  Receive Date: 20250328
  Receipt Date: 20250328
  Transmission Date: 20250408
  Serious: Yes (Other)
  Sender: ITALFARMACO SPA
  Company Number: DE-ITALFARMACO SPA-2173842

PATIENT
  Age: 16 Year
  Sex: Male
  Weight: 38.5 kg

DRUGS (3)
  1. DUVYZAT [Suspect]
     Active Substance: GIVINOSTAT
     Indication: Duchenne muscular dystrophy
     Dates: start: 20250214
  2. DEFLAZACORT [Concomitant]
     Active Substance: DEFLAZACORT
  3. VITAMIN D NOS [Concomitant]
     Active Substance: CHOLECALCIFEROL\ERGOCALCIFEROL

REACTIONS (1)
  - Thrombocytopenia [Not Recovered/Not Resolved]

NARRATIVE: CASE EVENT DATE: 20250303
